FAERS Safety Report 7435626-4 (Version None)
Quarter: 2011Q2

REPORT INFORMATION
  Report Type: 
  Country: None (occurrence: None)
  Receive Date: 20110425
  Receipt Date: 20110228
  Transmission Date: 20111010
  Serious: No
  Sender: FDA-Public Use
  Company Number: US-MYLANLABS-2010S1022740

PATIENT
  Age: 67 Year
  Sex: Female

DRUGS (6)
  1. HYDROCHLOROTHIAZIDE [Concomitant]
     Route: 048
     Dates: start: 20101101
  2. GABAPENTIN [Concomitant]
     Route: 048
  3. CLONIDINE [Suspect]
     Indication: BLOOD PRESSURE INCREASED
     Dosage: WEEKLY
     Route: 062
     Dates: start: 20101208, end: 20111213
  4. MULTI-VITAMIN [Concomitant]
  5. POTASSIUM [Concomitant]
     Route: 048
     Dates: start: 20101101
  6. ASPIRIN [Concomitant]
     Route: 048

REACTIONS (4)
  - DRUG INEFFECTIVE [None]
  - HEADACHE [None]
  - BLOOD PRESSURE INCREASED [None]
  - DIZZINESS [None]
